FAERS Safety Report 7686849-0 (Version None)
Quarter: 2011Q3

REPORT INFORMATION
  Report Type: 
  Country: None (occurrence: None)
  Receive Date: 20110816
  Receipt Date: 20110801
  Transmission Date: 20111222
  Serious: Yes (Hospitalization)
  Sender: FDA-Public Use
  Company Number: ES-WATSON-2011-12646

PATIENT
  Age: 22 Year
  Sex: Female

DRUGS (1)
  1. LEVONORGESTREL (UNKNOWN) [Suspect]
     Indication: CONTRACEPTION
     Dosage: 1.5 MG, UNK
     Route: 048

REACTIONS (1)
  - DEEP VEIN THROMBOSIS [None]
